FAERS Safety Report 5370880-4 (Version None)
Quarter: 2007Q2

REPORT INFORMATION
  Report Type: 
  Country: None (occurrence: None)
  Receive Date: 20070614
  Receipt Date: 20070410
  Transmission Date: 20071010
  Serious: No
  Sender: FDA-Public Use
  Company Number: BDI-009377

PATIENT
  Age: 67 Year
  Sex: Female

DRUGS (2)
  1. MULTIHANCE [Suspect]
     Indication: HYPERTENSION
     Dosage: 20 ML ONCE IV
     Route: 042
     Dates: start: 20061229, end: 20061229
  2. MULTIHANCE [Suspect]
     Indication: NUCLEAR MAGNETIC RESONANCE IMAGING
     Dosage: 20 ML ONCE IV
     Route: 042
     Dates: start: 20061229, end: 20061229

REACTIONS (4)
  - MUSCULAR WEAKNESS [None]
  - PRURITUS [None]
  - RASH [None]
  - SKIN BURNING SENSATION [None]
